FAERS Safety Report 8990455 (Version 2)
Quarter: 2013Q1

REPORT INFORMATION
  Report Type: Report from Study
  Country: US (occurrence: US)
  Receive Date: 20121228
  Receipt Date: 20130131
  Transmission Date: 20140127
  Serious: Yes (Hospitalization)
  Sender: FDA-Public Use
  Company Number: US-PFIZER INC-2012325085

PATIENT
  Age: 46 Year
  Sex: Male
  Weight: 75.7 kg

DRUGS (11)
  1. IRINOTECAN HCL [Suspect]
     Indication: COLORECTAL CANCER METASTATIC
     Dosage: 180 MG/M2, CYCLIC, EVERY 14 DAYS
     Route: 042
     Dates: start: 20120516, end: 20121114
  2. FLUOROURACIL [Suspect]
     Indication: COLORECTAL CANCER METASTATIC
     Dosage: 400 MG/M2, CYCLIC, ON DAY 1 EVERY 14 DAYS
     Route: 040
     Dates: start: 20120516, end: 20121017
  3. FLUOROURACIL [Suspect]
     Dosage: 2400 MG/M2, CYCLIC, ON DAYS 1 AND 2 EVERY 14 DAYS
     Route: 042
     Dates: start: 20120516, end: 20121017
  4. FOLINIC ACID [Suspect]
     Indication: COLORECTAL CANCER METASTATIC
     Dosage: 400 MG/M2, CYCLIC, DAY 1 EVERY 14 DAYS
     Route: 042
     Dates: start: 20120516, end: 20121017
  5. BLINDED THERAPY [Suspect]
     Indication: COLORECTAL CANCER METASTATIC
     Dosage: UNK
     Dates: start: 20120516, end: 20121017
  6. DILAUDID [Concomitant]
     Dosage: UNK
     Dates: start: 20120531
  7. NORCO [Concomitant]
     Dosage: UNK
     Dates: start: 20101208
  8. LISINOPRIL [Concomitant]
     Dosage: UNK
     Dates: start: 20101213
  9. LOPRESSOR [Concomitant]
     Dosage: UNK
     Dates: start: 20001214
  10. FENTANYL [Concomitant]
     Dosage: UNK
     Dates: start: 20120531
  11. METRONIDAZOLE [Concomitant]
     Indication: CLOSTRIDIUM DIFFICILE COLITIS
     Dosage: UNK
     Dates: start: 20120709

REACTIONS (2)
  - Renal failure acute [Recovered/Resolved]
  - Clostridium difficile colitis [Recovered/Resolved]
